FAERS Safety Report 25762616 (Version 1)
Quarter: 2025Q3

REPORT INFORMATION
  Report Type: Spontaneous
  Country: EU (occurrence: EU)
  Receive Date: 20250904
  Receipt Date: 20250904
  Transmission Date: 20251021
  Serious: Yes (Other)
  Sender: AMERICAN REGENT
  Company Number: EU-AMERICAN REGENT INC-2025003349

PATIENT
  Age: 73 Year
  Sex: Female

DRUGS (5)
  1. FERINJECT [Suspect]
     Active Substance: FERRIC CARBOXYMALTOSE
     Indication: Product used for unknown indication
     Route: 042
     Dates: start: 20250803, end: 20250803
  2. AUGMENTIN [Suspect]
     Active Substance: AMOXICILLIN\CLAVULANATE POTASSIUM
     Indication: Antibiotic therapy
     Route: 042
     Dates: start: 20250731, end: 20250806
  3. INNOHEP [Suspect]
     Active Substance: TINZAPARIN SODIUM
     Indication: Ischaemic stroke
     Route: 058
     Dates: start: 20250731, end: 20250804
  4. INNOHEP [Suspect]
     Active Substance: TINZAPARIN SODIUM
     Route: 058
     Dates: start: 20250805, end: 20250807
  5. ASPIRIN [Concomitant]
     Active Substance: ASPIRIN
     Indication: Product used for unknown indication
     Route: 065
     Dates: start: 20250731, end: 20250804

REACTIONS (1)
  - Hepatic cytolysis [Recovering/Resolving]

NARRATIVE: CASE EVENT DATE: 20250806
